FAERS Safety Report 7502526-0 (Version None)
Quarter: 2011Q2

REPORT INFORMATION
  Report Type: 
  Country: None (occurrence: None)
  Receive Date: 20110517
  Receipt Date: 20110502
  Transmission Date: 20111010
  Serious: Yes (Death)
  Sender: FDA-Public Use
  Company Number: AUR-APL-2011-01551

PATIENT
  Age: 84 Year
  Sex: Female

DRUGS (6)
  1. CLONIDINE [Suspect]
     Indication: MUSCLE TWITCHING
  2. PHENYTOIN [Suspect]
     Indication: MUSCLE TWITCHING
  3. CLONAZEPAM [Suspect]
     Indication: MUSCLE TWITCHING
  4. MULTI-VITAMIN [Concomitant]
  5. PROPRANOLOL [Suspect]
     Indication: MUSCLE TWITCHING
  6. LEVETIRACETAM [Suspect]
     Indication: MUSCLE TWITCHING

REACTIONS (5)
  - MUSCLE TWITCHING [None]
  - DELIRIUM [None]
  - CONDITION AGGRAVATED [None]
  - PARANEOPLASTIC ENCEPHALOMYELITIS [None]
  - VIITH NERVE PARALYSIS [None]
